FAERS Safety Report 13557219 (Version 1)
Quarter: 2017Q2

REPORT INFORMATION
  Report Type: Spontaneous
  Country: CN (occurrence: CN)
  Receive Date: 20170518
  Receipt Date: 20170518
  Transmission Date: 20170830
  Serious: Yes (Hospitalization)
  Sender: FDA-Public Use
  Company Number: CN-GLENMARK PHARMACEUTICALS-2017GMK027512

PATIENT
  Age: 39 Year
  Sex: Female

DRUGS (6)
  1. CLOZAPINE. [Suspect]
     Active Substance: CLOZAPINE
     Dosage: 150 MG, QD
     Route: 065
  2. LITHIUM. [Suspect]
     Active Substance: LITHIUM
     Indication: MANIA
     Dosage: 0.75 MG, QD
     Route: 065
  3. CLOZAPINE. [Suspect]
     Active Substance: CLOZAPINE
     Indication: MANIA
     Dosage: 50 MG, QD
  4. HALOPERIDOL. [Suspect]
     Active Substance: HALOPERIDOL
     Indication: MANIA
     Dosage: 5 MG, BID
     Route: 030
  5. SCOPOLAMINE                        /00008701/ [Suspect]
     Active Substance: SCOPOLAMINE
     Indication: MANIA
     Dosage: 0.3 MG, BID
     Route: 065
  6. CLOZAPINE. [Suspect]
     Active Substance: CLOZAPINE
     Dosage: UNK
     Route: 048

REACTIONS (1)
  - Neuroleptic malignant syndrome [Recovered/Resolved]
